FAERS Safety Report 12101449 (Version 3)
Quarter: 2016Q2

REPORT INFORMATION
  Report Type: Spontaneous
  Country: JP (occurrence: JP)
  Receive Date: 20160222
  Receipt Date: 20160418
  Transmission Date: 20160815
  Serious: Yes (Death)
  Sender: FDA-Public Use
  Company Number: JP-ELI_LILLY_AND_COMPANY-JP201602005796

PATIENT
  Age: 75 Year
  Sex: Male

DRUGS (8)
  1. MEIACT [Concomitant]
     Active Substance: CEFDITOREN PIVOXIL
     Indication: PAIN PROPHYLAXIS
     Dosage: 100 MG, TID
     Dates: start: 20151228, end: 20151230
  2. CEFEPIME HYDROCHLORIDE. [Suspect]
     Active Substance: CEFEPIME HYDROCHLORIDE
     Indication: FEBRILE NEUTROPENIA
     Dosage: 2 G, BID
     Dates: start: 20160110, end: 20160111
  3. CRAVIT [Suspect]
     Active Substance: LEVOFLOXACIN
     Indication: FEBRILE NEUTROPENIA
     Dosage: 500 MG, UNK
     Dates: start: 20160112, end: 20160117
  4. PANVITAN                           /05664201/ [Concomitant]
     Active Substance: VITAMINS
     Indication: PROPHYLAXIS
  5. FRESMIN [Concomitant]
     Active Substance: HYDROXOCOBALAMIN
     Indication: PROPHYLAXIS
  6. ALIMTA [Suspect]
     Active Substance: PEMETREXED DISODIUM
     Indication: NON-SMALL CELL LUNG CANCER
     Dosage: UNK
     Route: 042
     Dates: start: 20151228, end: 20151228
  7. CARBOPLATIN. [Concomitant]
     Active Substance: CARBOPLATIN
     Indication: NON-SMALL CELL LUNG CANCER
     Dosage: UNK
     Route: 042
     Dates: start: 20151228
  8. LOXONIN [Concomitant]
     Active Substance: LOXOPROFEN SODIUM

REACTIONS (3)
  - Neutrophil count decreased [Unknown]
  - Pyrexia [Unknown]
  - Hepatitis fulminant [Fatal]

NARRATIVE: CASE EVENT DATE: 201601
